FAERS Safety Report 5822254-7 (Version None)
Quarter: 2008Q3

REPORT INFORMATION
  Report Type: 
  Country: None (occurrence: None)
  Receive Date: 20080725
  Receipt Date: 20080714
  Transmission Date: 20090109
  Serious: Yes (Other)
  Sender: FDA-Public Use
  Company Number: US-ELI_LILLY_AND_COMPANY-US200807002813

PATIENT
  Age: 48 Year
  Sex: Female

DRUGS (6)
  1. CYMBALTA [Suspect]
     Indication: FIBROMYALGIA
     Dates: start: 20070101
  2. CYMBALTA [Suspect]
     Dates: start: 20080101
  3. CYMBALTA [Suspect]
     Dosage: 30 MG, UNK
     Dates: start: 20080707
  4. VICODIN [Concomitant]
     Indication: SURGERY
     Dates: start: 20070501
  5. IBUPROFEN TABLETS [Concomitant]
  6. MUSCLE RELAXANTS [Concomitant]

REACTIONS (3)
  - INSOMNIA [None]
  - INTERVERTEBRAL DISC OPERATION [None]
  - POOR QUALITY SLEEP [None]
